FAERS Safety Report 6408288-2 (Version None)
Quarter: 2009Q4

REPORT INFORMATION
  Report Type: 
  Country: None (occurrence: None)
  Receive Date: 20091021
  Receipt Date: 20091008
  Transmission Date: 20100525
  Serious: Yes (Other)
  Sender: FDA-Public Use
  Company Number: US-PFIZER INC-2009283007

PATIENT
  Sex: Female

DRUGS (3)
  1. GEODON [Suspect]
     Indication: OBSESSIVE-COMPULSIVE DISORDER
     Dosage: 20 MG, 2X/DAY
     Route: 048
     Dates: start: 20090921, end: 20091003
  2. ZOLOFT [Concomitant]
  3. BUSPAR [Concomitant]

REACTIONS (7)
  - ACTIVITIES OF DAILY LIVING IMPAIRED [None]
  - DIZZINESS [None]
  - INSOMNIA [None]
  - MALAISE [None]
  - SLEEP DISORDER [None]
  - SLEEP PHASE RHYTHM DISTURBANCE [None]
  - SOMNOLENCE [None]
